FAERS Safety Report 7267340-2 (Version None)
Quarter: 2011Q1

REPORT INFORMATION
  Report Type: 
  Country: None (occurrence: None)
  Receive Date: 20110201
  Receipt Date: 20100323
  Transmission Date: 20110831
  Serious: No
  Sender: FDA-Public Use
  Company Number: A0851480A

PATIENT
  Sex: Male

DRUGS (1)
  1. FONDAPARINUX SODIUM [Suspect]
     Dates: start: 20091212, end: 20091229

REACTIONS (1)
  - LOCAL SWELLING [None]
